FAERS Safety Report 13642763 (Version 1)
Quarter: 2017Q2

REPORT INFORMATION
  Report Type: Spontaneous
  Country: DE (occurrence: DE)
  Receive Date: 20170612
  Receipt Date: 20170612
  Transmission Date: 20170830
  Serious: Yes (Other)
  Sender: FDA-Public Use
  Company Number: DE-TEVA-774254GER

PATIENT
  Age: 30 Year
  Sex: Female

DRUGS (12)
  1. GABAPENTIN-RATIOPHARM 300 MG HARTKAPSELN [Suspect]
     Active Substance: GABAPENTIN
     Indication: MIDDLE INSOMNIA
  2. DOMINAL (PROTHIPENDYL HYDROCHLORIDE) [Suspect]
     Active Substance: PROTHIPENDYL HYDROCHLORIDE
     Indication: INITIAL INSOMNIA
     Dosage: INTAKE HALF AN HOUR BEFORE BED TIME
     Route: 048
  3. PIPAMPERON [Suspect]
     Active Substance: PIPAMPERONE HYDROCHLORIDE
     Indication: INITIAL INSOMNIA
  4. MIDAZOLAM-RATIOPHARM 2 MG/ML ORALE LOESUNG [Suspect]
     Active Substance: MIDAZOLAM HYDROCHLORIDE
     Indication: INITIAL INSOMNIA
     Dosage: INTAKE HALF AN HOUR BEFORE BED TIME
     Route: 048
  5. GABAPENTIN-RATIOPHARM 300 MG HARTKAPSELN [Suspect]
     Active Substance: GABAPENTIN
     Indication: INITIAL INSOMNIA
     Dosage: INTAKE HALF AN HOUR BEFORE BED TIME
     Route: 048
  6. LAMOTRIGIN [Concomitant]
     Active Substance: LAMOTRIGINE
     Indication: EPILEPSY
     Route: 065
  7. PIPAMPERON [Suspect]
     Active Substance: PIPAMPERONE HYDROCHLORIDE
     Indication: MIDDLE INSOMNIA
     Dosage: INTAKE HALF AN HOUR BEFORE BED TIME
     Route: 048
  8. ALPRAZOLAM. [Concomitant]
     Active Substance: ALPRAZOLAM
     Indication: EPILEPSY
     Route: 065
  9. MIDAZOLAM-RATIOPHARM 2 MG/ML ORALE LOESUNG [Suspect]
     Active Substance: MIDAZOLAM HYDROCHLORIDE
     Indication: MIDDLE INSOMNIA
  10. RIVOTRIL [Concomitant]
     Active Substance: CLONAZEPAM
     Indication: EPILEPSY
     Route: 065
  11. LYRICA [Concomitant]
     Active Substance: PREGABALIN
     Indication: EPILEPSY
     Route: 065
  12. DOMINAL (PROTHIPENDYL HYDROCHLORIDE) [Suspect]
     Active Substance: PROTHIPENDYL HYDROCHLORIDE
     Indication: MIDDLE INSOMNIA

REACTIONS (2)
  - Epilepsy [Unknown]
  - Palpitations [Unknown]
